FAERS Safety Report 6403668-3 (Version None)
Quarter: 2009Q4

REPORT INFORMATION
  Report Type: 
  Country: None (occurrence: None)
  Receive Date: 20091016
  Receipt Date: 20091009
  Transmission Date: 20100525
  Serious: Yes (Other)
  Sender: FDA-Public Use
  Company Number: SE-BAYER-200935586GPV

PATIENT
  Age: 76 Year
  Sex: Male

DRUGS (5)
  1. PRIMOVIST [Suspect]
     Indication: LIVER INJURY
     Dosage: TOTAL DAILY DOSE: 10 ML
     Route: 042
     Dates: start: 20090723, end: 20090723
  2. SELOKEN ZOC / METOPROLOL [Concomitant]
  3. OMEPRAZOL ABCUR [Concomitant]
     Route: 048
  4. NITROLINGUAL SUBLINGUAL SPRAY [Concomitant]
     Route: 060
  5. CITALOPRAM CNS PHARMA [Concomitant]
     Route: 048

REACTIONS (5)
  - ANAPHYLACTIC REACTION [None]
  - NAUSEA [None]
  - RESPIRATION ABNORMAL [None]
  - URTICARIA [None]
  - VOMITING [None]
